FAERS Safety Report 7037884-7 (Version None)
Quarter: 2010Q4

REPORT INFORMATION
  Report Type: 
  Country: None (occurrence: None)
  Receive Date: 20101011
  Receipt Date: 20100908
  Transmission Date: 20110411
  Serious: No
  Sender: FDA-Public Use
  Company Number: US-BAYER-201027169NA

PATIENT
  Age: 63 Year
  Sex: Male
  Weight: 71 kg

DRUGS (1)
  1. ULTRAVIST 300 [Suspect]
     Indication: COMPUTERISED TOMOGRAM ABDOMEN
     Dosage: RIGHT ANTECUBITAL FOREARM
     Route: 042
     Dates: start: 20100430, end: 20100430

REACTIONS (3)
  - COUGH [None]
  - NASAL CONGESTION [None]
  - OROPHARYNGEAL DISCOMFORT [None]
